FAERS Safety Report 15517765 (Version 2)
Quarter: 2019Q4

REPORT INFORMATION
  Report Type: Spontaneous
  Country: US (occurrence: US)
  Receive Date: 20181017
  Receipt Date: 20191011
  Transmission Date: 20200122
  Serious: Yes (Other)
  Sender: FDA-Public Use
  Company Number: US-ELI_LILLY_AND_COMPANY-US201810005546

PATIENT
  Sex: Male

DRUGS (3)
  1. CIALIS [Suspect]
     Active Substance: TADALAFIL
     Indication: PRODUCT USED FOR UNKNOWN INDICATION
     Dosage: 20 MG, (2-4 MONTH)
     Route: 065
     Dates: start: 2008
  2. FLOMAX [MORNIFLUMATE] [Concomitant]
     Active Substance: MORNIFLUMATE
     Indication: PROSTATIC DISORDER
     Dosage: 0.4 MG, DAILY
     Dates: start: 20131003
  3. CIALIS [Suspect]
     Active Substance: TADALAFIL
     Dosage: 20 MG, (2-4 PER MONTH)
     Route: 065
     Dates: start: 20131119, end: 20160108

REACTIONS (3)
  - Malignant melanoma stage I [Unknown]
  - Basal cell carcinoma [Recovered/Resolved]
  - Skin ulcer [Unknown]

NARRATIVE: CASE EVENT DATE: 201206
